FAERS Safety Report 13588452 (Version 1)
Quarter: 2017Q2

REPORT INFORMATION
  Report Type: Spontaneous
  Country: US (occurrence: US)
  Receive Date: 20170529
  Receipt Date: 20170529
  Transmission Date: 20170830
  Serious: No
  Sender: FDA-Public Use
  Company Number: US-BAUSCH-BL-2016-008335

PATIENT
  Age: 74 Year
  Sex: Female
  Weight: 54.48 kg

DRUGS (11)
  1. DUREZOL [Suspect]
     Active Substance: DIFLUPREDNATE
     Indication: CATARACT OPERATION
     Dosage: ONE DROP IN SURGICAL THREE TIMES DAILY
     Route: 047
     Dates: start: 20160302
  2. LISINOPRIL. [Concomitant]
     Active Substance: LISINOPRIL
     Indication: HYPERTENSION
     Route: 048
  3. SIMVASTATIN. [Concomitant]
     Active Substance: SIMVASTATIN
     Indication: BLOOD CHOLESTEROL ABNORMAL
     Route: 048
  4. PREDNISONE. [Concomitant]
     Active Substance: PREDNISONE
     Indication: ASTHMA
     Route: 048
  5. PROLENSA [Suspect]
     Active Substance: BROMFENAC SODIUM
     Indication: CATARACT OPERATION
     Route: 047
     Dates: start: 20160229, end: 20160405
  6. GENTAMICIN. [Suspect]
     Active Substance: GENTAMICIN
     Indication: CATARACT OPERATION
     Dosage: ONE DROP IN SURGICAL EYE FOUR TIMES A DAY FOR 7 DAYS AFTER SURGERY
     Route: 047
     Dates: start: 20160302
  7. ATENOLOL. [Concomitant]
     Active Substance: ATENOLOL
     Indication: HYPERTENSION
     Dosage: ONE-HALF TABLET DAILY
     Route: 048
  8. SINGULAIR [Concomitant]
     Active Substance: MONTELUKAST SODIUM
     Indication: ASTHMA
     Route: 048
  9. CALCIUM AND VITAMIN D [Concomitant]
     Active Substance: CALCIUM\VITAMIN D
     Indication: BONE DISORDER
     Route: 048
  10. ADVAIR HFA [Concomitant]
     Active Substance: FLUTICASONE PROPIONATE\SALMETEROL XINAFOATE
     Indication: ASTHMA
     Dosage: 150/50 MCG?ONE INHALATION TWICE DAILY
     Route: 048
  11. I-CAPS [Concomitant]
     Indication: MACULAR DEGENERATION
     Route: 048
     Dates: start: 201603

REACTIONS (3)
  - Urticaria [Recovering/Resolving]
  - Swelling face [Recovering/Resolving]
  - Pruritus [Recovering/Resolving]

NARRATIVE: CASE EVENT DATE: 20160306
